FAERS Safety Report 6076440-4 (Version None)
Quarter: 2009Q1

REPORT INFORMATION
  Report Type: 
  Country: None (occurrence: None)
  Receive Date: 20090213
  Receipt Date: 20090206
  Transmission Date: 20090719
  Serious: Yes (Other)
  Sender: FDA-Public Use
  Company Number: US-JNJFOC-20090202273

PATIENT
  Sex: Female

DRUGS (11)
  1. FENTANYL TRANSDERMAL SYSTEM [Suspect]
     Indication: PAIN
     Route: 062
  2. DURAGESIC-100 [Suspect]
     Indication: PAIN
     Route: 062
  3. NEURONTIN [Concomitant]
     Indication: NEURALGIA
     Dosage: 250 MG/5ML
     Route: 048
  4. MORPHINE [Concomitant]
     Indication: PAIN
     Route: 048
  5. SKELAXIN [Concomitant]
     Indication: MYALGIA
     Route: 048
  6. PLAVIX [Concomitant]
     Indication: ANTIPLATELET THERAPY
     Route: 048
  7. MAGNESIUM OXIDE [Concomitant]
     Route: 048
  8. ENABLEX [Concomitant]
     Indication: HYPERTONIC BLADDER
     Route: 048
  9. RAZADYNE [Concomitant]
     Route: 048
  10. EVISTA [Concomitant]
     Indication: OSTEOPOROSIS PROPHYLAXIS
     Route: 048
  11. SYNTHROID [Concomitant]
     Indication: HYPOTHYROIDISM
     Route: 048

REACTIONS (7)
  - CARDIAC FAILURE CONGESTIVE [None]
  - CONVULSION [None]
  - EYE INFECTION [None]
  - HYPERTENSION [None]
  - MIOSIS [None]
  - OESOPHAGEAL STENOSIS [None]
  - PNEUMONIA [None]
